FAERS Safety Report 4623881-5 (Version None)
Quarter: 2005Q1

REPORT INFORMATION
  Report Type: 
  Country: None (occurrence: None)
  Receive Date: 20050331
  Receipt Date: 20050323
  Transmission Date: 20050727
  Serious: Yes (Hospitalization)
  Sender: FDA-Public Use
  Company Number: US-JNJFOC-20050306400

PATIENT
  Sex: Female
  Weight: 56.7 kg

DRUGS (6)
  1. DURAGESIC-100 [Suspect]
     Route: 062
     Dates: start: 20030301
  2. XANAX [Concomitant]
     Indication: ANXIETY
     Route: 049
     Dates: start: 20020301
  3. TOPROL-XL [Concomitant]
     Indication: BLOOD PRESSURE
     Route: 049
     Dates: start: 20000301
  4. LIDODERM PATCH [Concomitant]
     Indication: BACK PAIN
     Route: 062
     Dates: start: 20040301
  5. LORCET-HD [Concomitant]
     Route: 049
     Dates: start: 20030301
  6. LORCET-HD [Concomitant]
     Indication: PAIN
     Dosage: HYDROCODONE BITARTRATE 10 MG AND ACETAMINOPHEN 650 MG AS NEEDED.
     Route: 049
     Dates: start: 20030301

REACTIONS (5)
  - ANAEMIA [None]
  - DYSPNOEA [None]
  - NERVOUSNESS [None]
  - PANIC ATTACK [None]
  - WEIGHT DECREASED [None]
